FAERS Safety Report 13491348 (Version 1)
Quarter: 2017Q2

REPORT INFORMATION
  Report Type: Spontaneous
  Country: US (occurrence: US)
  Receive Date: 20170427
  Receipt Date: 20170427
  Transmission Date: 20170830
  Serious: Yes (Other)
  Sender: FDA-Public Use
  Company Number: US-BEH-2017079797

PATIENT
  Sex: Female

DRUGS (1)
  1. HIZENTRA [Suspect]
     Active Substance: HUMAN IMMUNOGLOBULIN G
     Indication: PRODUCT USED FOR UNKNOWN INDICATION
     Dosage: 5TH INFUSION
     Route: 065

REACTIONS (6)
  - Presyncope [Unknown]
  - Dizziness [Unknown]
  - Anaphylactic reaction [Unknown]
  - Infusion site swelling [Unknown]
  - Cold sweat [Unknown]
  - Infusion site erythema [Unknown]
